FAERS Safety Report 7041806-2 (Version None)
Quarter: 2010Q4

REPORT INFORMATION
  Report Type: 
  Country: None (occurrence: None)
  Receive Date: 20101013
  Receipt Date: 20100929
  Transmission Date: 20110411
  Serious: Yes (Other)
  Sender: FDA-Public Use
  Company Number: PHEH2006US15179

PATIENT
  Sex: Male

DRUGS (7)
  1. ZOMETA [Suspect]
     Dosage: 4 MG, UNK
     Dates: start: 20050101, end: 20051014
  2. HYDROCHLOROTHIAZIDE [Concomitant]
     Indication: BLOOD PRESSURE
     Dosage: 25 MG 1 TABLET DAILY
     Route: 048
  3. ACYCLOVIR [Concomitant]
     Dosage: 800 MG 1 TABLET DAILY
     Route: 048
  4. ASPIRIN [Concomitant]
     Route: 048
  5. GLYBURIDE [Concomitant]
     Indication: DIABETES MELLITUS
     Dosage: 2.5 MG 1 TABLET EVERY MORNING AND 0.5 TAB EVERY EVENING
     Route: 048
  6. LISINOPRIL [Concomitant]
     Indication: BLOOD PRESSURE
     Dosage: 10 MG 1 TABLET DAILY
  7. METFORMIN [Concomitant]
     Indication: DIABETES MELLITUS
     Dosage: 500 MG 0.5 TABLET TWICE DAILY
     Route: 048

REACTIONS (23)
  - ANXIETY [None]
  - BONE DENSITY DECREASED [None]
  - BONE LESION [None]
  - CHEST PAIN [None]
  - DEAFNESS NEUROSENSORY [None]
  - DECREASED INTEREST [None]
  - DERMATITIS CONTACT [None]
  - GENERAL PHYSICAL HEALTH DETERIORATION [None]
  - HEPATIC ENZYME INCREASED [None]
  - HERPES ZOSTER [None]
  - INTERVERTEBRAL DISC SPACE NARROWING [None]
  - MULTIPLE MYELOMA [None]
  - NASAL SEPTUM DEVIATION [None]
  - ORAL DISORDER [None]
  - OSTEOARTHRITIS [None]
  - OSTEONECROSIS OF JAW [None]
  - PAIN [None]
  - RASH [None]
  - SINUSITIS [None]
  - STEM CELL TRANSPLANT [None]
  - TINNITUS [None]
  - TOOTH DEPOSIT [None]
  - TOOTH LOSS [None]
